FAERS Safety Report 5697258-8 (Version None)
Quarter: 2008Q2

REPORT INFORMATION
  Report Type: 
  Country: None (occurrence: None)
  Receive Date: 20080408
  Receipt Date: 20070823
  Transmission Date: 20081010
  Serious: Yes (Hospitalization)
  Sender: FDA-Public Use
  Company Number: US-BAYER-US-2007-028571

PATIENT
  Age: 19 Year
  Sex: Female
  Weight: 55 kg

DRUGS (2)
  1. YASMIN [Suspect]
     Route: 048
     Dates: start: 20070601, end: 20070730
  2. EFFEXOR [Concomitant]
     Dates: start: 20070727

REACTIONS (3)
  - BACK PAIN [None]
  - DYSPNOEA [None]
  - PULMONARY EMBOLISM [None]
